FAERS Safety Report 21247967 (Version 1)
Quarter: 2022Q3

REPORT INFORMATION
  Report Type: Spontaneous
  Country: US (occurrence: None)
  Receive Date: 20220823
  Receipt Date: 20220823
  Transmission Date: 20221027
  Serious: Yes (Hospitalization)
  Sender: FDA-Public Use
  Company Number: None

PATIENT
  Sex: Male
  Weight: 76.6 kg

DRUGS (4)
  1. CISPLATIN [Suspect]
     Active Substance: CISPLATIN
     Dates: end: 20220503
  2. IFOSFAMIDE [Suspect]
     Active Substance: IFOSFAMIDE
     Dates: end: 20220503
  3. TAXOL [Suspect]
     Active Substance: PACLITAXEL
     Dates: end: 20220429
  4. NEULASTA [Suspect]
     Active Substance: PEGFILGRASTIM
     Dates: end: 20220504

REACTIONS (3)
  - Testicular cancer metastatic [None]
  - SARS-CoV-2 test positive [None]
  - Neutropenic sepsis [None]

NARRATIVE: CASE EVENT DATE: 20220507
